FAERS Safety Report 22174955 (Version 1)
Quarter: 2023Q2

REPORT INFORMATION
  Report Type: Spontaneous
  Country: GB (occurrence: GB)
  Receive Date: 20230405
  Receipt Date: 20230405
  Transmission Date: 20230721
  Serious: Yes (Other)
  Sender: FDA-Public Use
  Company Number: None

PATIENT
  Age: 3 Month

DRUGS (1)
  1. OMEPRAZOLE [Suspect]
     Active Substance: OMEPRAZOLE
     Dosage: NA
     Route: 048

REACTIONS (4)
  - Choking [Unknown]
  - Product use complaint [Unknown]
  - Circumstance or information capable of leading to medication error [Unknown]
  - Product physical consistency issue [Unknown]
